FAERS Safety Report 8027549-7 (Version None)
Quarter: 2012Q1

REPORT INFORMATION
  Report Type: 
  Country: None (occurrence: None)
  Receive Date: 20120106
  Receipt Date: 20120103
  Transmission Date: 20120608
  Serious: Yes (Other)
  Sender: FDA-Public Use
  Company Number: US-JNJFOC-20111102560

PATIENT
  Sex: Female

DRUGS (9)
  1. TRENTAL [Concomitant]
     Dosage: ONCE A DAY
     Route: 048
  2. CARDIZEM [Concomitant]
     Route: 048
  3. VOLTAREN [Concomitant]
     Indication: ARTHRALGIA
     Dosage: APPLIED 3-4 TIMES PER DAY
     Route: 065
     Dates: start: 20090401
  4. LIDODERM [Concomitant]
     Indication: PAIN
     Dosage: APPLIED 12HRS PER DAY
     Route: 065
     Dates: start: 20100601
  5. NUCYNTA [Suspect]
     Indication: PAIN
     Dosage: 3 TIMES A DAY
     Route: 048
     Dates: start: 20111010, end: 20111013
  6. LASIX [Concomitant]
     Route: 048
  7. PLAVIX [Concomitant]
     Dosage: ONCE A DAY
     Route: 048
  8. DIOVAN [Concomitant]
     Route: 048
  9. TRAMADOL HCL [Concomitant]
     Indication: PAIN
     Dosage: THRICE A DAY
     Route: 048
     Dates: start: 20111101

REACTIONS (1)
  - VAGINAL HAEMORRHAGE [None]
